FAERS Safety Report 9521692 (Version 1)
Quarter: 2013Q3

REPORT INFORMATION
  Report Type: Spontaneous
  Country: US (occurrence: None)
  Receive Date: 20130911
  Receipt Date: 20130911
  Transmission Date: 20140515
  Serious: No
  Sender: FDA-Public Use
  Company Number: AEUSA201300090

PATIENT
  Age: 8 Year
  Sex: Male
  Weight: 3.63 kg

DRUGS (4)
  1. GAMUNEX [Suspect]
     Indication: IMMUNE THROMBOCYTOPENIC PURPURA
     Route: 042
     Dates: start: 201302
  2. METHYLPREDINISOLONE [Concomitant]
  3. BENADRYL [Concomitant]
  4. PARACETAMOL [Concomitant]

REACTIONS (1)
  - Headache [None]
